FAERS Safety Report 7959738-1 (Version None)
Quarter: 2011Q4

REPORT INFORMATION
  Report Type: 
  Country: None (occurrence: None)
  Receive Date: 20111206
  Receipt Date: 20111129
  Transmission Date: 20120403
  Serious: Yes (Hospitalization)
  Sender: FDA-Public Use
  Company Number: JP-GLAXOSMITHKLINE-B0693106A

PATIENT
  Sex: Female
  Weight: 36 kg

DRUGS (2)
  1. TRAPIDIL [Concomitant]
     Indication: THROMBOSIS PROPHYLAXIS
     Dosage: 300MG PER DAY
     Route: 048
  2. ARIXTRA [Suspect]
     Indication: THROMBOSIS PROPHYLAXIS
     Dosage: 1.5MG PER DAY
     Route: 058
     Dates: start: 20101113, end: 20101115

REACTIONS (3)
  - MUSCULAR WEAKNESS [None]
  - EXTRADURAL HAEMATOMA [None]
  - PARALYSIS [None]
